FAERS Safety Report 8129650-6 (Version None)
Quarter: 2012Q1

REPORT INFORMATION
  Report Type: 
  Country: None (occurrence: None)
  Receive Date: 20120210
  Receipt Date: 20120130
  Transmission Date: 20120608
  Serious: Yes (Other)
  Sender: FDA-Public Use
  Company Number: GB-BRISTOL-MYERS SQUIBB COMPANY-16393787

PATIENT
  Age: 60 Year
  Sex: Male

DRUGS (3)
  1. CISPLATIN [Suspect]
     Indication: TESTICULAR GERM CELL CANCER
  2. BLEOMYCIN SULFATE [Suspect]
     Indication: TESTICULAR GERM CELL CANCER
  3. ETOPOSIDE [Suspect]
     Indication: TESTICULAR GERM CELL CANCER

REACTIONS (2)
  - THROMBOCYTOPENIA [None]
  - ANAEMIA [None]
